FAERS Safety Report 8535686-3 (Version None)
Quarter: 2012Q2

REPORT INFORMATION
  Report Type: 
  Country: None (occurrence: None)
  Receive Date: 20120412
  Receipt Date: 20090824
  Transmission Date: 20120825
  Serious: Yes (Hospitalization)
  Sender: FDA-Public Use
  Company Number: PHEH2009US02025

PATIENT
  Sex: Female

DRUGS (1)
  1. CLOZARIL [Suspect]

REACTIONS (5)
  - PNEUMONIA [None]
  - HEADACHE [None]
  - SMALL INTESTINAL OBSTRUCTION [None]
  - MALAISE [None]
  - SURGERY [None]
